FAERS Safety Report 24670724 (Version 2)
Quarter: 2024Q4

REPORT INFORMATION
  Report Type: Spontaneous
  Country: JP (occurrence: JP)
  Receive Date: 20241127
  Receipt Date: 20241226
  Transmission Date: 20250115
  Serious: Yes (Death, Hospitalization)
  Sender: AMGEN
  Company Number: JP-AMGEN-JPNSP2024232881

PATIENT

DRUGS (1)
  1. EVENITY [Suspect]
     Active Substance: ROMOSOZUMAB-AQQG
     Indication: Product used for unknown indication
     Dosage: 210 MILLIGRAM
     Route: 058

REACTIONS (2)
  - Death [Fatal]
  - Hospitalisation [Unknown]
